FAERS Safety Report 17440690 (Version 1)
Quarter: 2020Q1

REPORT INFORMATION
  Report Type: Spontaneous
  Country: IT (occurrence: IT)
  Receive Date: 20200220
  Receipt Date: 20200220
  Transmission Date: 20200409
  Serious: Yes (Other)
  Sender: FDA-Public Use
  Company Number: IT-PFIZER INC-2020002318

PATIENT
  Age: 56 Year
  Sex: Male
  Weight: 88 kg

DRUGS (1)
  1. OXALIPLATIN. [Suspect]
     Active Substance: OXALIPLATIN
     Indication: PANCREATIC CARCINOMA
     Dosage: 110 MG, CYCLIC
     Route: 042

REACTIONS (7)
  - Nausea [Recovered/Resolved]
  - Hypotension [Unknown]
  - Oxygen saturation decreased [Unknown]
  - Product use in unapproved indication [Unknown]
  - Abdominal pain [Recovered/Resolved]
  - Hypoaesthesia [Recovered/Resolved]
  - Off label use [Unknown]

NARRATIVE: CASE EVENT DATE: 20190828
